FAERS Safety Report 7435629-X (Version None)
Quarter: 2011Q2

REPORT INFORMATION
  Report Type: 
  Country: None (occurrence: None)
  Receive Date: 20110425
  Receipt Date: 20110124
  Transmission Date: 20111010
  Serious: No
  Sender: FDA-Public Use
  Company Number: US-MYLANLABS-2011S1001753

PATIENT
  Age: 56 Year
  Sex: Female

DRUGS (1)
  1. CLONIDINE [Suspect]
     Indication: BLOOD PRESSURE INCREASED
     Dosage: CHANGED QW
     Route: 062
     Dates: start: 20110114

REACTIONS (4)
  - DRY MOUTH [None]
  - FEELING JITTERY [None]
  - BLOOD PRESSURE FLUCTUATION [None]
  - DRUG INEFFECTIVE [None]
